FAERS Safety Report 8464012-3 (Version None)
Quarter: 2012Q2

REPORT INFORMATION
  Report Type: 
  Country: None (occurrence: None)
  Receive Date: 20120625
  Receipt Date: 20120620
  Transmission Date: 20120825
  Serious: Yes (Hospitalization, Other)
  Sender: FDA-Public Use
  Company Number: US-JNJFOC-20100804720

PATIENT
  Sex: Female

DRUGS (3)
  1. LEVAQUIN [Suspect]
     Indication: WHITE BLOOD CELL COUNT INCREASED
     Route: 048
     Dates: start: 20090101, end: 20090101
  2. LEVAQUIN [Suspect]
     Route: 042
  3. LEVAQUIN [Suspect]
     Indication: DIVERTICULITIS
     Route: 042

REACTIONS (4)
  - PERIARTHRITIS [None]
  - ROTATOR CUFF SYNDROME [None]
  - EPICONDYLITIS [None]
  - TENDON RUPTURE [None]
